FAERS Safety Report 6058089-2 (Version None)
Quarter: 2009Q1

REPORT INFORMATION
  Report Type: 
  Country: None (occurrence: None)
  Receive Date: 20090128
  Receipt Date: 20090119
  Transmission Date: 20090719
  Serious: Yes (Other)
  Sender: FDA-Public Use
  Company Number: 2009AP000240

PATIENT
  Age: 44 Year
  Sex: Female

DRUGS (6)
  1. ONDANSETRON [Suspect]
     Indication: NAUSEA
     Dosage: 4 MG; IV
     Route: 042
  2. MORPHINE [Concomitant]
  3. ACETYLSALICYLIC ACID SRT [Concomitant]
  4. CLOPIDOGREL [Concomitant]
  5. HEPARIN [Concomitant]
  6. NITROGLYCERIN [Concomitant]

REACTIONS (5)
  - ALANINE AMINOTRANSFERASE INCREASED [None]
  - ANGINA PECTORIS [None]
  - ASPARTATE AMINOTRANSFERASE INCREASED [None]
  - DYSPNOEA [None]
  - NAUSEA [None]
